FAERS Safety Report 6907806-5 (Version None)
Quarter: 2010Q3

REPORT INFORMATION
  Report Type: 
  Country: None (occurrence: None)
  Receive Date: 20100712
  Receipt Date: 20100512
  Transmission Date: 20110219
  Serious: No
  Sender: FDA-Public Use
  Company Number: US-000026

PATIENT
  Sex: Female
  Weight: 77.1115 kg

DRUGS (6)
  1. KUVAN [Suspect]
     Indication: PHENYLKETONURIA
     Dosage: (800 MG QD ORAL), (ORAL)
     Route: 048
     Dates: start: 20090201, end: 20100202
  2. KUVAN [Suspect]
     Indication: PHENYLKETONURIA
     Dosage: (800 MG QD ORAL), (ORAL)
     Route: 048
     Dates: start: 20100320
  3. CALCIUM WITH VITAMIN D /01233101/ [Concomitant]
  4. OMEGA 3 /01334101/ [Concomitant]
  5. ZINC [Concomitant]
  6. VITAMINE C [Concomitant]

REACTIONS (8)
  - ABDOMINAL PAIN [None]
  - CHANGE OF BOWEL HABIT [None]
  - DEFAECATION URGENCY [None]
  - DRUG EXPOSURE DURING PREGNANCY [None]
  - FAECES DISCOLOURED [None]
  - FREQUENT BOWEL MOVEMENTS [None]
  - IRRITABILITY [None]
  - NAUSEA [None]
